FAERS Safety Report 8618577-9 (Version None)
Quarter: 2012Q3

REPORT INFORMATION
  Report Type: 
  Country: None (occurrence: None)
  Receive Date: 20120824
  Receipt Date: 20120816
  Transmission Date: 20120928
  Serious: Yes (Other)
  Sender: FDA-Public Use
  Company Number: US-PFIZER INC-2012199576

PATIENT
  Sex: Male

DRUGS (2)
  1. KEPPRA [Suspect]
     Indication: CONVULSION
     Dosage: UNK
     Dates: start: 20070101, end: 20120202
  2. DILANTIN [Suspect]
     Indication: CONVULSION
     Dosage: 2 CAPSULES OF 100 MG IN THE MORNING AND 3 CAPSULES OF 100 MG IN THE EVENING(2X/DAY)
     Route: 048
     Dates: start: 20080101

REACTIONS (1)
  - DRUG INEFFECTIVE [None]
